FAERS Safety Report 6293403-4 (Version None)
Quarter: 2009Q3

REPORT INFORMATION
  Report Type: 
  Country: None (occurrence: None)
  Receive Date: 20090731
  Receipt Date: 20090720
  Transmission Date: 20100115
  Serious: Yes (Hospitalization)
  Sender: FDA-Public Use
  Company Number: US-ELI_LILLY_AND_COMPANY-US200907004513

PATIENT
  Sex: Male

DRUGS (8)
  1. CYMBALTA [Suspect]
     Dosage: 30 MG, UNK
     Dates: start: 20090707, end: 20090701
  2. CYMBALTA [Suspect]
     Dosage: 60 MG, UNK
     Dates: start: 20090701, end: 20090712
  3. DETROL [Concomitant]
  4. ARICEPT [Concomitant]
  5. SIMVASTATIN [Concomitant]
  6. METOPROLOL TARTRATE [Concomitant]
  7. DOXAZOSIN MESYLATE [Concomitant]
  8. LISINOPRIL [Concomitant]

REACTIONS (1)
  - DELIRIUM [None]
